FAERS Safety Report 23669714 (Version 2)
Quarter: 2025Q1

REPORT INFORMATION
  Report Type: Spontaneous
  Country: IN (occurrence: IN)
  Receive Date: 20240325
  Receipt Date: 20250130
  Transmission Date: 20250409
  Serious: Yes (Death)
  Sender: PFIZER
  Company Number: IN-PFIZER INC-PV202400039476

PATIENT
  Age: 39 Year
  Sex: Male

DRUGS (1)
  1. LORLATINIB [Suspect]
     Active Substance: LORLATINIB
     Dosage: 100 MG, ONCE A DAY
     Route: 048
     Dates: start: 202401, end: 202401

REACTIONS (1)
  - Death [Fatal]

NARRATIVE: CASE EVENT DATE: 20240218
